FAERS Safety Report 20953988 (Version 1)
Quarter: 2022Q2

REPORT INFORMATION
  Report Type: Spontaneous
  Country: FR (occurrence: FR)
  Receive Date: 20220614
  Receipt Date: 20220614
  Transmission Date: 20220721
  Serious: Yes (Hospitalization, Other)
  Sender: FDA-Public Use
  Company Number: FR-AFSSAPS-PS20220851

PATIENT
  Age: 61 Year
  Sex: Female

DRUGS (4)
  1. PANTOPRAZOLE SODIUM [Suspect]
     Active Substance: PANTOPRAZOLE SODIUM
     Indication: Ulcer
     Dosage: 40 MILLIGRAM, ONCE A DAY
     Route: 042
     Dates: start: 20211210, end: 20220125
  2. REPAGLINIDE [Suspect]
     Active Substance: REPAGLINIDE
     Indication: Diabetes mellitus
     Dosage: 2 MILLIGRAM, ONCE A DAY
     Route: 048
     Dates: start: 20220104, end: 20220125
  3. VALGANCICLOVIR [Suspect]
     Active Substance: VALGANCICLOVIR
     Indication: Cytomegalovirus chorioretinitis
     Dosage: 450 MILLIGRAM, TWO TIMES A DAY
     Route: 048
     Dates: start: 20211125, end: 20220125
  4. VORICONAZOLE [Suspect]
     Active Substance: VORICONAZOLE
     Indication: Fusarium infection
     Dosage: 300 MILLIGRAM ( MORNING AND EVENING)
     Route: 042
     Dates: start: 20211109, end: 20220125

REACTIONS (3)
  - Cholestasis [Recovering/Resolving]
  - Hepatic cytolysis [Recovering/Resolving]
  - Jaundice [Recovering/Resolving]

NARRATIVE: CASE EVENT DATE: 20220125
